FAERS Safety Report 8274493-6 (Version None)
Quarter: 2012Q2

REPORT INFORMATION
  Report Type: 
  Country: None (occurrence: None)
  Receive Date: 20120411
  Receipt Date: 20120328
  Transmission Date: 20120825
  Serious: Yes (Death, Life-Threatening, Other)
  Sender: FDA-Public Use
  Company Number: JP-ROCHE-1044502

PATIENT
  Sex: Female
  Weight: 43 kg

DRUGS (11)
  1. GASMOTIN [Concomitant]
     Route: 048
  2. RENAGEL [Concomitant]
     Route: 048
  3. ADALAT CC [Concomitant]
     Route: 048
  4. METOPROLOL TARTRATE [Concomitant]
     Route: 048
  5. OMEPRAZOLE [Concomitant]
     Route: 048
  6. CRESTOR [Concomitant]
     Dosage: DOSAGE IS UNCERTAIN.
     Route: 048
  7. NORVASC [Concomitant]
     Route: 048
  8. OLOPATADINE HCL [Concomitant]
     Route: 048
  9. ALDACTONE [Concomitant]
     Route: 048
  10. TAMIFLU [Suspect]
     Indication: ANTIVIRAL PROPHYLAXIS
     Route: 048
     Dates: start: 20120222, end: 20120222
  11. LASIX [Concomitant]
     Route: 048

REACTIONS (7)
  - ALTERED STATE OF CONSCIOUSNESS [None]
  - CONVULSION [None]
  - PANCREATITIS [None]
  - ACUTE MYOCARDIAL INFARCTION [None]
  - THROMBOTIC THROMBOCYTOPENIC PURPURA [None]
  - PULMONARY CONGESTION [None]
  - VASCULITIS [None]
